FAERS Safety Report 4777173-4 (Version None)
Quarter: 2005Q3

REPORT INFORMATION
  Report Type: 
  Country: None (occurrence: None)
  Receive Date: 20050923
  Receipt Date: 20050808
  Transmission Date: 20060218
  Serious: Yes (Hospitalization)
  Sender: FDA-Public Use
  Company Number: NZ-ROCHE-413407

PATIENT
  Age: 54 Year
  Weight: 71 kg

DRUGS (2)
  1. PEGASYS [Suspect]
     Indication: HEPATITIS C
     Dosage: FORM: PREFILLED SYRINGE.
     Route: 058
     Dates: start: 20041217
  2. COPEGUS [Suspect]
     Indication: HEPATITIS C
     Route: 048
     Dates: start: 20041217

REACTIONS (9)
  - BRONCHIAL NEOPLASM [None]
  - BRONCHIECTASIS [None]
  - COLLAPSE OF LUNG [None]
  - COUGH [None]
  - HAEMOPTYSIS [None]
  - MYCETOMA MYCOTIC [None]
  - POSTOPERATIVE FEVER [None]
  - PYREXIA [None]
  - TUBERCULOSIS [None]
